FAERS Safety Report 10377024 (Version 2)
Quarter: 2014Q3

REPORT INFORMATION
  Report Type: Spontaneous
  Country: US (occurrence: US)
  Receive Date: 20140812
  Receipt Date: 20140819
  Transmission Date: 20150326
  Serious: Yes (Other)
  Sender: FDA-Public Use
  Company Number: US-SA-2014SA106109

PATIENT
  Age: 66 Year
  Sex: Male

DRUGS (1)
  1. ALEMTUZUMAB [Suspect]
     Active Substance: ALEMTUZUMAB
     Indication: LYMPHOCYTIC LYMPHOMA
     Route: 065

REACTIONS (6)
  - Vomiting [Unknown]
  - Acute myocardial infarction [Unknown]
  - Chills [Unknown]
  - Nausea [Unknown]
  - Tachycardia [Unknown]
  - Hyperhidrosis [Unknown]
